FAERS Safety Report 13023103 (Version 1)
Quarter: 2016Q4

REPORT INFORMATION
  Report Type: Spontaneous
  Country: US (occurrence: US)
  Receive Date: 20161213
  Receipt Date: 20161213
  Transmission Date: 20170207
  Serious: Yes (Other)
  Sender: FDA-Public Use
  Company Number: US-TEVA-672497USA

PATIENT
  Age: 55 Year
  Sex: Female
  Weight: 77.18 kg

DRUGS (8)
  1. AZITHROMYCIN ANHYDROUS. [Suspect]
     Active Substance: AZITHROMYCIN ANHYDROUS
     Indication: EAR INFECTION
     Dosage: 250 MILLIGRAM DAILY;
     Dates: start: 20160605, end: 20160606
  2. PREDNISONE. [Suspect]
     Active Substance: PREDNISONE
     Indication: DEAFNESS
  3. CLONAZEPAM. [Concomitant]
     Active Substance: CLONAZEPAM
     Indication: SLEEP DISORDER
  4. AUGMENTIN [Suspect]
     Active Substance: AMOXICILLIN\CLAVULANATE POTASSIUM
     Indication: SINUSITIS
     Dosage: 500 MILLIGRAM DAILY;
     Dates: start: 20160607, end: 20160613
  5. AZITHROMYCIN ANHYDROUS. [Suspect]
     Active Substance: AZITHROMYCIN ANHYDROUS
     Indication: SINUSITIS
     Dosage: 500 MILLIGRAM DAILY;
     Dates: start: 20160604, end: 20160604
  6. CYTOMEL [Concomitant]
     Active Substance: LIOTHYRONINE SODIUM
     Indication: THYROID DISORDER
  7. LEVOTHYROXINE. [Concomitant]
     Active Substance: LEVOTHYROXINE
     Indication: THYROID DISORDER
  8. PREDNISONE. [Suspect]
     Active Substance: PREDNISONE
     Indication: TINNITUS
     Dates: start: 20160610

REACTIONS (5)
  - Deafness [Recovering/Resolving]
  - Tinnitus [Recovering/Resolving]
  - Drug ineffective [Unknown]
  - Hyperacusis [Recovering/Resolving]
  - Ear disorder [Not Recovered/Not Resolved]

NARRATIVE: CASE EVENT DATE: 201606
